FAERS Safety Report 9361152 (Version 1)
Quarter: 2013Q2

REPORT INFORMATION
  Report Type: Spontaneous
  Country: US (occurrence: US)
  Receive Date: 20130621
  Receipt Date: 20130621
  Transmission Date: 20140414
  Serious: Yes (Hospitalization, Other)
  Sender: FDA-Public Use
  Company Number: US-009507513-0511USA03093

PATIENT
  Sex: Female
  Weight: 60.78 kg

DRUGS (15)
  1. FOSAMAX [Suspect]
     Indication: OSTEOPENIA
     Dosage: 10 MG, QD
     Route: 048
     Dates: start: 20000302, end: 20010325
  2. FOSAMAX [Suspect]
     Indication: OSTEOPOROSIS
     Dosage: 70 MG, QW
     Route: 048
     Dates: start: 20010326, end: 20041109
  3. NITROFURANTOIN [Concomitant]
     Indication: ACNE
     Dates: start: 20000224, end: 20040802
  4. PREMPRO [Concomitant]
     Dates: start: 20000210, end: 20030530
  5. ALLEGRA [Concomitant]
     Indication: HYPERSENSITIVITY
     Dates: start: 20000309, end: 20011230
  6. CLARITIN [Concomitant]
     Dates: start: 20010110
  7. TEQUIN [Concomitant]
     Dates: start: 20010110
  8. PAXIL [Concomitant]
     Dates: start: 20001226
  9. ZOVIRAX [Concomitant]
     Dates: start: 20000114, end: 20001219
  10. FLUOCINONIDE [Concomitant]
     Dates: start: 20000118, end: 20001219
  11. DIFFERIN [Concomitant]
     Dates: start: 20000224, end: 20001219
  12. NIZORAL [Concomitant]
     Dates: start: 20000224, end: 20001105
  13. GUAIFENEX [Concomitant]
     Dates: start: 20001107
  14. RETIN-A [Concomitant]
     Dates: start: 20000225
  15. FOSAMAX PLUS D [Suspect]
     Dates: start: 200406, end: 200604

REACTIONS (55)
  - Periodontitis [Not Recovered/Not Resolved]
  - Osteomyelitis [Not Recovered/Not Resolved]
  - Loss of consciousness [Unknown]
  - Renal failure chronic [Not Recovered/Not Resolved]
  - Proteinuria [Unknown]
  - Renal failure [Unknown]
  - Osteonecrosis of jaw [Not Recovered/Not Resolved]
  - Scleroderma [Not Recovered/Not Resolved]
  - Raynaud^s phenomenon [Unknown]
  - Renal disorder [Unknown]
  - Systemic sclerosis [Not Recovered/Not Resolved]
  - Oesophageal disorder [Unknown]
  - Pulmonary mass [Not Recovered/Not Resolved]
  - Fatigue [Unknown]
  - Depression [Unknown]
  - Anxiety [Unknown]
  - Tachycardia [Unknown]
  - Adverse event [Unknown]
  - Bronchitis [Not Recovered/Not Resolved]
  - Anxiety [Not Recovered/Not Resolved]
  - Sleep disorder [Recovered/Resolved]
  - Dry mouth [Not Recovered/Not Resolved]
  - Hypertension [Not Recovered/Not Resolved]
  - Toothache [Unknown]
  - Pulpitis dental [Unknown]
  - Dental caries [Unknown]
  - Otitis media [Unknown]
  - Migraine with aura [Unknown]
  - Palpitations [Unknown]
  - Panic attack [Unknown]
  - Joint crepitation [Unknown]
  - Sinus disorder [Unknown]
  - Tooth disorder [Unknown]
  - Dental caries [Unknown]
  - Tooth disorder [Recovering/Resolving]
  - Tooth disorder [Recovering/Resolving]
  - Tooth fracture [Unknown]
  - Tooth infection [Recovered/Resolved]
  - Incision site complication [Unknown]
  - Tooth disorder [Unknown]
  - Tooth fracture [Unknown]
  - Bone density decreased [Unknown]
  - Gingival disorder [Unknown]
  - Dental caries [Unknown]
  - Incision site complication [Unknown]
  - Oral disorder [Unknown]
  - Gingival bleeding [Unknown]
  - Tooth loss [Not Recovered/Not Resolved]
  - Aphagia [Unknown]
  - Gastrooesophageal reflux disease [Not Recovered/Not Resolved]
  - Drug ineffective [Unknown]
  - Dysphagia [Unknown]
  - Neck pain [Unknown]
  - Back pain [Unknown]
  - Aphthous stomatitis [Recovering/Resolving]
